FAERS Safety Report 8540228-2 (Version None)
Quarter: 2012Q3

REPORT INFORMATION
  Report Type: 
  Country: None (occurrence: None)
  Receive Date: 20120726
  Receipt Date: 20120717
  Transmission Date: 20120928
  Serious: Yes (Other)
  Sender: FDA-Public Use
  Company Number: US-ASTRAZENECA-2010SE53783

PATIENT
  Age: 50 Year
  Sex: Male

DRUGS (2)
  1. NEXIUM [Suspect]
     Dosage: ONCE PER DAY
     Route: 048
  2. NEXIUM [Suspect]
     Dosage: TWO TIMES A DAY
     Route: 048

REACTIONS (11)
  - NAUSEA [None]
  - DRUG DOSE OMISSION [None]
  - DRUG INEFFECTIVE [None]
  - REGURGITATION [None]
  - CHOKING [None]
  - VOMITING [None]
  - APHAGIA [None]
  - MEMORY IMPAIRMENT [None]
  - BRAIN NEOPLASM [None]
  - INTENTIONAL DRUG MISUSE [None]
  - MALAISE [None]
